APPROVED DRUG PRODUCT: LAMOTRIGINE
Active Ingredient: LAMOTRIGINE
Strength: 250MG
Dosage Form/Route: TABLET, EXTENDED RELEASE;ORAL
Application: A207497 | Product #005 | TE Code: AB
Applicant: AMNEAL PHARMACEUTICALS OF NEW YORK LLC
Approved: Nov 30, 2018 | RLD: No | RS: No | Type: RX